FAERS Safety Report 8499477-4 (Version None)
Quarter: 2012Q2

REPORT INFORMATION
  Report Type: 
  Country: None (occurrence: None)
  Receive Date: 20120628
  Receipt Date: 20120615
  Transmission Date: 20120825
  Serious: Yes (Hospitalization)
  Sender: FDA-Public Use
  Company Number: UTC-020033

PATIENT
  Age: 73 Year
  Sex: Male
  Weight: 98.1 kg

DRUGS (3)
  1. TYVASO [Suspect]
     Indication: PULMONARY ARTERIAL HYPERTENSION
     Dosage: 144 MCG (36 MCG, 4 IN 1 D), INHALATION
     Route: 055
     Dates: start: 20120502
  2. ASPIRIN [Concomitant]
  3. DIURETICS (DIURETICS) [Concomitant]

REACTIONS (1)
  - BLOOD POTASSIUM INCREASED [None]
